FAERS Safety Report 11642709 (Version 1)
Quarter: 2015Q4

REPORT INFORMATION
  Report Type: Spontaneous
  Country: US (occurrence: US)
  Receive Date: 20151020
  Receipt Date: 20151020
  Transmission Date: 20160304
  Serious: Yes (Other)
  Sender: FDA-Public Use
  Company Number: US-BEH-2015054714

PATIENT

DRUGS (1)
  1. HIZENTRA [Suspect]
     Active Substance: HUMAN IMMUNOGLOBULIN G
     Indication: PRODUCT USED FOR UNKNOWN INDICATION

REACTIONS (6)
  - Streptococcal infection [Unknown]
  - Sinusitis [Unknown]
  - Conjunctivitis [Unknown]
  - Staphylococcal infection [Unknown]
  - Cellulitis [Unknown]
  - Headache [Unknown]
